FAERS Safety Report 7166209-1 (Version None)
Quarter: 2010Q4

REPORT INFORMATION
  Report Type: 
  Country: None (occurrence: None)
  Receive Date: 20101216
  Receipt Date: 20100915
  Transmission Date: 20110411
  Serious: Yes (Death, Life-Threatening, Hospitalization)
  Sender: FDA-Public Use
  Company Number: PK-ELI_LILLY_AND_COMPANY-PK201008006219

PATIENT
  Age: 50 Year
  Sex: Male
  Weight: 65 kg

DRUGS (3)
  1. ALIMTA [Suspect]
     Indication: LUNG NEOPLASM MALIGNANT
     Dosage: UNK, UNKNOWN
     Route: 065
     Dates: start: 20100727, end: 20100727
  2. FOLIC ACID [Concomitant]
     Indication: PREMEDICATION
  3. VITAMIN B-12 [Concomitant]
     Indication: PREMEDICATION

REACTIONS (1)
  - DIARRHOEA [None]
